FAERS Safety Report 21544471 (Version 2)
Quarter: 2022Q4

REPORT INFORMATION
  Report Type: Report from Study
  Country: US (occurrence: US)
  Receive Date: 20221102
  Receipt Date: 20221130
  Transmission Date: 20230113
  Serious: Yes (Hospitalization)
  Sender: FDA-Public Use
  Company Number: US-ABBVIE-22K-163-4404557-00

PATIENT
  Sex: Female

DRUGS (3)
  1. HUMIRA [Suspect]
     Active Substance: ADALIMUMAB
     Indication: Psoriasis
     Dosage: CITRATE FREE, STRENGHT:40MG
     Route: 058
  2. HUMIRA [Suspect]
     Active Substance: ADALIMUMAB
     Dosage: CITRATE FREE, STRENGHT:40MG
     Route: 058
  3. PFIZER-BIONTECH COVID-19 VACCINE [Concomitant]
     Active Substance: TOZINAMERAN
     Indication: COVID-19 immunisation
     Dosage: TIME INTERVAL: 1 TOTAL
     Route: 030

REACTIONS (14)
  - Influenza [Unknown]
  - Dizziness [Unknown]
  - Chronic kidney disease [Not Recovered/Not Resolved]
  - Bladder disorder [Unknown]
  - COVID-19 [Unknown]
  - Asthma [Unknown]
  - Kidney infection [Unknown]
  - Psoriasis [Unknown]
  - Drug ineffective [Unknown]
  - Pain [Unknown]
  - Malaise [Unknown]
  - Dehydration [Unknown]
  - Haematochezia [Unknown]
  - Renal pain [Unknown]

NARRATIVE: CASE EVENT DATE: 20220101
